FAERS Safety Report 13275291 (Version 2)
Quarter: 2017Q2

REPORT INFORMATION
  Report Type: Spontaneous
  Country: AT (occurrence: AT)
  Receive Date: 20170228
  Receipt Date: 20170426
  Transmission Date: 20170830
  Serious: Yes (Death, Other)
  Sender: FDA-Public Use
  Company Number: AT-BRISTOL-MYERS SQUIBB COMPANY-BMS-2017-015006

PATIENT
  Sex: Male

DRUGS (1)
  1. OPDIVO [Suspect]
     Active Substance: NIVOLUMAB
     Indication: RENAL CELL CARCINOMA
     Dosage: UNK
     Route: 065

REACTIONS (5)
  - Ascites [Unknown]
  - Myositis [Unknown]
  - Blood lactate dehydrogenase increased [Unknown]
  - Malignant neoplasm progression [Fatal]
  - General physical health deterioration [Unknown]
